FAERS Safety Report 4282155-5 (Version None)
Quarter: 2004Q1

REPORT INFORMATION
  Report Type: 
  Country: None (occurrence: None)
  Receive Date: 20040112
  Receipt Date: 20031120
  Transmission Date: 20041129
  Serious: No
  Sender: FDA-Public Use
  Company Number: PHEH2003US10729

PATIENT
  Age: 14 Year
  Sex: Female

DRUGS (1)
  1. ELIDEL [Suspect]
     Indication: ECZEMA
     Dosage: BID, TOPICAL
     Route: 061
     Dates: start: 20020101, end: 20031028

REACTIONS (4)
  - DRUG INEFFECTIVE [None]
  - RASH [None]
  - RASH PAPULAR [None]
  - RASH PUSTULAR [None]
